FAERS Safety Report 7654842-X (Version None)
Quarter: 2011Q3

REPORT INFORMATION
  Report Type: 
  Country: None (occurrence: None)
  Receive Date: 20110803
  Receipt Date: 20110803
  Transmission Date: 20111222
  Serious: Yes (Other)
  Sender: FDA-Public Use
  Company Number: None

PATIENT
  Age: 84 Year
  Sex: Female

DRUGS (7)
  1. HYOSEYAMINE [Concomitant]
  2. REVLIMID [Suspect]
     Indication: MYELODYSPLASTIC SYNDROME
     Dosage: REVLIMID 5MG DAILY X21D/28D ORALLY
     Route: 048
     Dates: start: 20110601, end: 20110623
  3. LEVOTHROID [Concomitant]
  4. PREMARIN [Concomitant]
  5. FAMOTIDINE [Concomitant]
  6. ALPRAZOLAM [Concomitant]
  7. LOSARTAN POTASSIUM [Concomitant]

REACTIONS (2)
  - THROMBOCYTOPENIA [None]
  - FATIGUE [None]
